FAERS Safety Report 19004807 (Version 2)
Quarter: 2021Q1

REPORT INFORMATION
  Report Type: Spontaneous
  Country: ID (occurrence: ID)
  Receive Date: 20210312
  Receipt Date: 20210323
  Transmission Date: 20210420
  Serious: Yes (Death, Hospitalization)
  Sender: FDA-Public Use
  Company Number: ID-ROCHE-2788669

PATIENT
  Age: 37 Year
  Sex: Male

DRUGS (1)
  1. TECENTRIQ [Suspect]
     Active Substance: ATEZOLIZUMAB
     Indication: NON-SMALL CELL LUNG CANCER
     Route: 065
     Dates: start: 20210222

REACTIONS (5)
  - Aspiration [Unknown]
  - Death [Fatal]
  - Choking [Unknown]
  - Condition aggravated [Unknown]
  - Pneumonia [Unknown]
